FAERS Safety Report 11220640 (Version 1)
Quarter: 2015Q2

REPORT INFORMATION
  Report Type: Spontaneous
  Country: US (occurrence: US)
  Receive Date: 20150626
  Receipt Date: 20150626
  Transmission Date: 20150821
  Serious: Yes (Other)
  Sender: FDA-Public Use
  Company Number: 2882930

PATIENT
  Age: 64 Year
  Sex: Female
  Weight: 69.85 kg

DRUGS (1)
  1. KETOROLAC [Suspect]
     Active Substance: KETOROLAC\KETOROLAC TROMETHAMINE
     Indication: CHEST PAIN
     Dates: start: 2014

REACTIONS (14)
  - Rash [Unknown]
  - Stent placement [Unknown]
  - Back pain [Unknown]
  - Pain in extremity [Not Recovered/Not Resolved]
  - Product quality issue [Unknown]
  - Feeling abnormal [Unknown]
  - Malaise [Unknown]
  - Neck pain [Unknown]
  - Headache [Not Recovered/Not Resolved]
  - Poor quality drug administered [Unknown]
  - Swelling [Unknown]
  - Dyspnoea [Unknown]
  - Fatigue [Unknown]
  - Muscle spasms [Not Recovered/Not Resolved]

NARRATIVE: CASE EVENT DATE: 20150612
